FAERS Safety Report 10171151 (Version 1)
Quarter: 2014Q2

REPORT INFORMATION
  Report Type: Spontaneous
  Country: US (occurrence: None)
  Receive Date: 20140513
  Receipt Date: 20140513
  Transmission Date: 20141212
  Serious: No
  Sender: FDA-Public Use
  Company Number: None

PATIENT
  Age: 62 Year
  Sex: Male
  Weight: 79.38 kg

DRUGS (17)
  1. BALANCED SALT SOLUTION [Suspect]
     Indication: INTRAOPERATIVE CARE
     Dosage: IRRIGATION SOLUTION (EYE)?
     Dates: start: 20140408
  2. LIDOCAINE PF [Suspect]
     Indication: INTRAOPERATIVE CARE
     Dosage: 0.5CC
     Route: 031
     Dates: start: 20140408
  3. ALPHAGAN [Suspect]
     Indication: CATARACT
     Dosage: 3 GTTS EYE?
     Dates: start: 20140408
  4. MICHOL-E [Suspect]
     Indication: INTRAOPERATIVE CARE
     Dates: start: 20140408
  5. DUOVISC [Suspect]
     Route: 031
     Dates: start: 20140408
  6. BALANCED SALT SOLUTION [Suspect]
     Indication: INTRAOPERATIVE CARE
     Dosage: TO IRRIGATE ?
     Dates: start: 20140408
  7. VIGAMOX [Suspect]
     Indication: POSTOPERATIVE CARE
     Dates: start: 20140408
  8. TOBRADEX [Suspect]
     Indication: POSTOPERATIVE CARE
     Dosage: 3 GTTS, X1?
     Dates: start: 20140408
  9. CYCLOPENTOLATE [Suspect]
     Indication: PREOPERATIVE CARE
     Dates: start: 20140408
  10. FLURBIPROFEN [Suspect]
     Indication: PREOPERATIVE CARE
     Dates: start: 20140408
  11. LIDOCAINE 2% [Suspect]
     Indication: PREOPERATIVE CARE
     Dates: start: 20140408
  12. LIDOCAINE [Suspect]
     Indication: PREOPERATIVE CARE
     Dates: start: 20140408
  13. PHENYLEPHRINE 2.5% [Suspect]
     Indication: PREOPERATIVE CARE
     Dosage: PRE-OPERATIVE
     Dates: start: 20140408
  14. TROPICAMIDE [Suspect]
     Indication: PREOPERATIVE CARE
     Dosage: PRE-OPERATIVE
     Dates: start: 20140408
  15. BETADINE [Suspect]
     Indication: PREOPERATIVE CARE
     Dosage: IMMEDIATELY PRE-OP PREP?
     Dates: start: 20140408
  16. TETRACAINE [Suspect]
     Indication: PREOPERATIVE CARE
     Dosage: EYE
     Dates: start: 20140408
  17. VIGAMOX [Concomitant]

REACTIONS (4)
  - Toxic anterior segment syndrome [None]
  - Bacterial test positive [None]
  - Post procedural complication [None]
  - Suspected transmission of an infectious agent via product [None]
